FAERS Safety Report 5405865-2 (Version None)
Quarter: 2007Q3

REPORT INFORMATION
  Report Type: 
  Country: None (occurrence: None)
  Receive Date: 20070806
  Receipt Date: 20070726
  Transmission Date: 20080115
  Serious: Yes (Life-Threatening)
  Sender: FDA-Public Use
  Company Number: JP-JNJFOC-20070602815

PATIENT
  Sex: Male
  Weight: 50 kg

DRUGS (47)
  1. DUROTEP [Suspect]
     Route: 062
  2. DUROTEP [Suspect]
     Route: 062
  3. DUROTEP [Suspect]
     Route: 062
  4. DUROTEP [Suspect]
     Route: 062
  5. DUROTEP [Suspect]
     Route: 062
  6. DUROTEP [Suspect]
     Route: 062
  7. DUROTEP [Suspect]
     Route: 062
  8. DUROTEP [Suspect]
     Route: 062
  9. DUROTEP [Suspect]
     Route: 062
  10. DUROTEP [Suspect]
     Route: 062
  11. DUROTEP [Suspect]
     Indication: CANCER PAIN
     Route: 062
  12. FLUOROURACIL [Suspect]
     Indication: CHEMOTHERAPY
     Route: 042
  13. OPSO [Concomitant]
     Dosage: 15-20MG
     Route: 048
  14. CISPLATIN [Concomitant]
     Indication: CHEMOTHERAPY
     Route: 065
  15. MORPHINE [Concomitant]
  16. BIOFERMIN R [Concomitant]
     Route: 048
  17. ESBERIVEN [Concomitant]
     Route: 048
  18. PRAVASTATIN [Concomitant]
     Route: 048
  19. LANSOPRAZOLE [Concomitant]
     Route: 048
  20. LANSOPRAZOLE [Concomitant]
     Route: 048
  21. AZULENE SULFONATE SODIUM [Concomitant]
     Route: 049
  22. AZULENE SULFONATE SODIUM [Concomitant]
     Route: 049
  23. XYLOCAINE [Concomitant]
     Route: 049
  24. XYLOCAINE [Concomitant]
     Route: 049
  25. ELASE [Concomitant]
     Route: 065
  26. ELASE [Concomitant]
     Route: 065
  27. NOVAMIN [Concomitant]
     Route: 048
  28. NOVAMIN [Concomitant]
     Route: 048
  29. NAUZELIN [Concomitant]
     Route: 065
  30. NAUZELIN [Concomitant]
     Route: 065
  31. KETOPROFEN [Concomitant]
     Route: 062
  32. KETOPROFEN [Concomitant]
     Route: 062
  33. KETOPROFEN [Concomitant]
     Route: 062
  34. KETOPROFEN [Concomitant]
     Route: 062
  35. KETOPROFEN [Concomitant]
     Route: 062
  36. MORPHINE HYDROCHLORIDE [Concomitant]
     Dosage: 5MG TO 15MG P.R.N
  37. MEFENAMIC ACID [Concomitant]
  38. LANOCONAZOLE [Concomitant]
     Route: 061
  39. LANOCONAZOLE [Concomitant]
     Route: 061
  40. DIAZEPAM [Concomitant]
  41. SENNOSIDE [Concomitant]
  42. MAGNESSIUM OXIDE [Concomitant]
  43. SODIUM BICARBONATE [Concomitant]
  44. SULPRIDE [Concomitant]
  45. PILOCARPINE [Concomitant]
  46. BROTIZOLAM [Concomitant]
  47. PAROXETINE HYDROCHLORIDE [Concomitant]

REACTIONS (5)
  - AFFECT LABILITY [None]
  - DEPRESSIVE SYMPTOM [None]
  - NAUSEA [None]
  - SUICIDE ATTEMPT [None]
  - VOMITING [None]
